FAERS Safety Report 5364301-5 (Version None)
Quarter: 2007Q2

REPORT INFORMATION
  Report Type: 
  Country: None (occurrence: None)
  Receive Date: 20070618
  Receipt Date: 20070604
  Transmission Date: 20071010
  Serious: Yes (Life-Threatening, Other)
  Sender: FDA-Public Use
  Company Number: 16754

PATIENT
  Age: 52 Year
  Sex: Female

DRUGS (1)
  1. ANZATAX [Suspect]
     Indication: CHEMOTHERAPY SINGLE AGENT SYSTEMIC
     Dosage: 175 MG/M2 PER_CYCLE IV
     Route: 042
     Dates: start: 20070320, end: 20070320

REACTIONS (6)
  - CYANOSIS [None]
  - DRUG HYPERSENSITIVITY [None]
  - DYSPNOEA [None]
  - FLUSHING [None]
  - HYPOTENSION [None]
  - INFUSION RELATED REACTION [None]
